FAERS Safety Report 7700613-5 (Version None)
Quarter: 2011Q3

REPORT INFORMATION
  Report Type: 
  Country: None (occurrence: None)
  Receive Date: 20110822
  Receipt Date: 20110822
  Transmission Date: 20111222
  Serious: Yes (Other)
  Sender: FDA-Public Use
  Company Number: None

PATIENT
  Age: 52 Year
  Sex: Female
  Weight: 113.39 kg

DRUGS (4)
  1. AMBIEN [Concomitant]
  2. METOPORAL [Concomitant]
  3. CYMBALTA [Suspect]
     Indication: DEPRESSION
     Dosage: 30 MG
     Route: 048
     Dates: start: 20091014, end: 20110816
  4. NEXIUM [Concomitant]

REACTIONS (15)
  - NAUSEA [None]
  - DIZZINESS [None]
  - IMPAIRED WORK ABILITY [None]
  - SENSORY DISTURBANCE [None]
  - WITHDRAWAL SYNDROME [None]
  - DECREASED APPETITE [None]
  - FATIGUE [None]
  - AFFECT LABILITY [None]
  - PARAESTHESIA [None]
  - INCORRECT DOSE ADMINISTERED [None]
  - DISTURBANCE IN ATTENTION [None]
  - SPEECH DISORDER [None]
  - DIARRHOEA [None]
  - DYSPHORIA [None]
  - LETHARGY [None]
